FAERS Safety Report 5804774-4 (Version None)
Quarter: 2008Q3

REPORT INFORMATION
  Report Type: 
  Country: None (occurrence: None)
  Receive Date: 20080709
  Receipt Date: 20080701
  Transmission Date: 20090109
  Serious: Yes (Hospitalization, Other)
  Sender: FDA-Public Use
  Company Number: GB-AMGEN-US291389

PATIENT

DRUGS (2)
  1. ENBREL [Suspect]
     Indication: DRUG USE FOR UNKNOWN INDICATION
     Dosage: 50MG, AS NECESSARY
     Route: 065
  2. METHOTREXATE [Suspect]
     Dosage: UNKNOWN
     Route: 065

REACTIONS (2)
  - PALPITATIONS [None]
  - SURGERY [None]
